FAERS Safety Report 22516443 (Version 1)
Quarter: 2023Q2

REPORT INFORMATION
  Report Type: Spontaneous
  Country: US (occurrence: None)
  Receive Date: 20230602
  Receipt Date: 20230602
  Transmission Date: 20230722
  Serious: No
  Sender: FDA-Public Use
  Company Number: 2023A126781

PATIENT
  Age: 28136 Day
  Sex: Male

DRUGS (1)
  1. BYDUREON BCISE [Suspect]
     Active Substance: EXENATIDE
     Route: 055

REACTIONS (5)
  - Injection site haemorrhage [Recovered/Resolved]
  - Injection site discharge [Unknown]
  - Device issue [Unknown]
  - Vessel puncture site haemorrhage [Recovered/Resolved]
  - Device use issue [Unknown]

NARRATIVE: CASE EVENT DATE: 20230524
